FAERS Safety Report 5169568-4 (Version None)
Quarter: 2006Q4

REPORT INFORMATION
  Report Type: 
  Country: None (occurrence: None)
  Receive Date: 20061204
  Receipt Date: 20061128
  Transmission Date: 20070319
  Serious: Yes (Other)
  Sender: FDA-Public Use
  Company Number: 163-20785-06100583

PATIENT
  Sex: Female

DRUGS (5)
  1. THALOMID [Suspect]
     Indication: MULTIPLE MYELOMA
     Dosage: 150  MG, 3 IN 1 D, ORAL
     Route: 048
     Dates: start: 20051004, end: 20061001
  2. THALOMID [Suspect]
  3. DEXAMETHASONE TAB [Suspect]
     Indication: MULTIPLE MYELOMA
     Dates: start: 20050927
  4. PROTONIX [Concomitant]
  5. COUMADIN [Concomitant]

REACTIONS (6)
  - BONE DISORDER [None]
  - FOOT FRACTURE [None]
  - LIPOMA [None]
  - NEUROPATHY [None]
  - OEDEMA PERIPHERAL [None]
  - WEIGHT INCREASED [None]
